FAERS Safety Report 8943497 (Version 3)
Quarter: 2013Q1

REPORT INFORMATION
  Report Type: Spontaneous
  Country: US (occurrence: US)
  Receive Date: 20121204
  Receipt Date: 20130211
  Transmission Date: 20140127
  Serious: No
  Sender: FDA-Public Use
  Company Number: US-PFIZER INC-2012301174

PATIENT
  Age: 42 Year
  Sex: Male

DRUGS (6)
  1. GABAPENTIN [Suspect]
     Indication: NEUROPATHY PERIPHERAL
     Dosage: 600 MG, 3X/DAY
     Dates: start: 201207, end: 20120821
  2. LISINOPRIL [Concomitant]
     Indication: HYPERTENSION
     Dosage: 20 MG, 1X/DAY
  3. XANAX [Concomitant]
     Indication: ANXIETY
     Dosage: 1 MG, AS NEEDED
  4. OXYBUTYNIN [Concomitant]
     Indication: URINARY INCONTINENCE
     Dosage: 15 MG, 1X/DAY
  5. FLONASE [Concomitant]
     Indication: RHINITIS ALLERGIC
     Dosage: 2SPRAYS B/C DAILY
  6. VICODIN [Concomitant]
     Indication: PAIN

REACTIONS (4)
  - Drug hypersensitivity [Unknown]
  - Diarrhoea [Recovered/Resolved]
  - Nausea [Recovered/Resolved]
  - Vomiting [Recovered/Resolved]
